FAERS Safety Report 6369916-3 (Version None)
Quarter: 2009Q3

REPORT INFORMATION
  Report Type: 
  Country: None (occurrence: None)
  Receive Date: 20090923
  Receipt Date: 20070914
  Transmission Date: 20100115
  Serious: No
  Sender: FDA-Public Use
  Company Number: US-ASTRAZENECA-2006UW10836

PATIENT
  Age: 16553 Day
  Sex: Female
  Weight: 84.8 kg

DRUGS (21)
  1. SEROQUEL [Suspect]
     Indication: DEPRESSION
     Route: 048
     Dates: start: 20050801, end: 20060620
  2. SEROQUEL [Suspect]
     Indication: INSOMNIA
     Route: 048
     Dates: start: 20050801, end: 20060620
  3. SEROQUEL [Suspect]
     Indication: NIGHTMARE
     Route: 048
     Dates: start: 20050801, end: 20060620
  4. SEROQUEL [Suspect]
     Dosage: 25 MG - 150 MG
     Route: 048
     Dates: start: 20050823
  5. SEROQUEL [Suspect]
     Dosage: 25 MG - 150 MG
     Route: 048
     Dates: start: 20050823
  6. SEROQUEL [Suspect]
     Dosage: 25 MG - 150 MG
     Route: 048
     Dates: start: 20050823
  7. REMERON [Concomitant]
  8. ZOLOFT [Concomitant]
  9. NORTRIPTYLINE HCL [Concomitant]
  10. DEPAKOTE ER [Concomitant]
  11. PROZAC [Concomitant]
  12. NAPROXEN [Concomitant]
  13. EPHEDRINE [Concomitant]
  14. LUNESTA [Concomitant]
  15. LEXAPRO [Concomitant]
  16. AMBIEN [Concomitant]
  17. PAXIL [Concomitant]
  18. CELEXA [Concomitant]
  19. ULTRAM [Concomitant]
  20. ALBUTEROL [Concomitant]
  21. DITROPAN XL [Concomitant]

REACTIONS (9)
  - ANTISOCIAL PERSONALITY DISORDER [None]
  - DIABETES MELLITUS [None]
  - HYPERCHOLESTEROLAEMIA [None]
  - HYPOTHYROIDISM [None]
  - NAUSEA [None]
  - PALPITATIONS [None]
  - PHARYNGITIS [None]
  - TACHYCARDIA [None]
  - URINARY TRACT INFECTION [None]
